FAERS Safety Report 9665305 (Version 2)
Quarter: 2013Q4

REPORT INFORMATION
  Report Type: Spontaneous
  Country: DK (occurrence: FR)
  Receive Date: 20131101
  Receipt Date: 20131101
  Transmission Date: 20140711
  Serious: Yes (Hospitalization)
  Sender: FDA-Public Use
  Company Number: FR-FRI-1000050116

PATIENT
  Age: 65 Year
  Sex: Male

DRUGS (6)
  1. ESCITALOPRAM [Suspect]
     Dosage: 1 DF
     Route: 048
     Dates: start: 20130602, end: 20130618
  2. SIFROL [Concomitant]
     Indication: PARKINSON^S DISEASE
     Dosage: 1 DF
     Route: 048
     Dates: start: 20130602, end: 20130618
  3. BACTRIM [Concomitant]
  4. ZELITREX [Concomitant]
  5. LOXAN [Concomitant]
  6. LEDERFOLINE [Concomitant]

REACTIONS (3)
  - Electrocardiogram QT prolonged [Recovered/Resolved]
  - Bradycardia [Recovered/Resolved]
  - Atrioventricular dissociation [Recovered/Resolved]
